FAERS Safety Report 16840889 (Version 5)
Quarter: 2020Q2

REPORT INFORMATION
  Report Type: Spontaneous
  Country: US (occurrence: US)
  Receive Date: 20190923
  Receipt Date: 20200416
  Transmission Date: 20200713
  Serious: Yes (Death, Other)
  Sender: FDA-Public Use
  Company Number: US-JNJFOC-20190927930

PATIENT
  Age: 80 Year
  Sex: Male
  Weight: 93.98 kg

DRUGS (2)
  1. LASIX [Concomitant]
     Active Substance: FUROSEMIDE
     Indication: CARDIAC FAILURE CONGESTIVE
     Route: 065
  2. ZYTIGA [Suspect]
     Active Substance: ABIRATERONE ACETATE
     Indication: PROSTATE CANCER
     Dosage: 4 TABLETS OF 250 MG
     Route: 048
     Dates: start: 201907

REACTIONS (4)
  - Drug ineffective [Unknown]
  - Prostate cancer [Fatal]
  - Prostate cancer metastatic [Not Recovered/Not Resolved]
  - Angioplasty [Unknown]

NARRATIVE: CASE EVENT DATE: 201907
